FAERS Safety Report 7132450-7 (Version None)
Quarter: 2010Q4

REPORT INFORMATION
  Report Type: 
  Country: None (occurrence: None)
  Receive Date: 20101202
  Receipt Date: 20101126
  Transmission Date: 20110411
  Serious: Yes (Life-Threatening)
  Sender: FDA-Public Use
  Company Number: FR-SANOFI-AVENTIS-2010SA071931

PATIENT
  Age: 73 Year
  Sex: Male

DRUGS (6)
  1. AMAREL [Suspect]
     Route: 048
     Dates: end: 20100904
  2. DIAMOX [Suspect]
     Route: 048
     Dates: start: 20100801, end: 20100904
  3. PREVISCAN [Suspect]
     Dosage: 10 MG AND 15 MG DAILY, EVERY TWO DAYS
     Route: 048
     Dates: end: 20100904
  4. GLUCOR [Suspect]
     Route: 065
     Dates: end: 20100904
  5. HEMIGOXINE NATIVELLE [Suspect]
     Route: 065
     Dates: end: 20100904
  6. NEBIVOLOL [Concomitant]
     Route: 065

REACTIONS (2)
  - CONDITION AGGRAVATED [None]
  - METABOLIC ACIDOSIS [None]
